FAERS Safety Report 23814996 (Version 1)
Quarter: 2024Q2

REPORT INFORMATION
  Report Type: Spontaneous
  Country: US (occurrence: US)
  Receive Date: 20240503
  Receipt Date: 20240503
  Transmission Date: 20240716
  Serious: Yes (Hospitalization)
  Sender: FDA-Public Use
  Company Number: US-MYLANLABS-2024M1039940

PATIENT
  Age: 77 Year
  Sex: Male

DRUGS (3)
  1. XALATAN [Suspect]
     Active Substance: LATANOPROST
     Indication: Glaucoma
     Dosage: 1 GTT DROPS, QD (ONE DROP IN RIGHT EYE, ONE TIME AT NIGHT)
     Route: 047
  2. ALPHAGAN P [Suspect]
     Active Substance: BRIMONIDINE TARTRATE
     Indication: Glaucoma
     Dosage: 1 GTT DROPS, TID (ONE DROP IN RIGHT EYE, THREE TIMES DAILY)
     Route: 047
  3. RHOPRESSA [Suspect]
     Active Substance: NETARSUDIL MESYLATE
     Indication: Glaucoma
     Dosage: 1 GTT DROPS, QD (ONE DROP IN RIGHT EYE, ONE TIME AT NIGHT)
     Route: 047

REACTIONS (1)
  - Drug ineffective [Unknown]
